FAERS Safety Report 18284663 (Version 3)
Quarter: 2020Q3

REPORT INFORMATION
  Report Type: Report from Study
  Country: US (occurrence: US)
  Receive Date: 20200918
  Receipt Date: 20200930
  Transmission Date: 20201105
  Serious: Yes (Death, Life-Threatening, Hospitalization, Disabling, Other)
  Sender: FDA-Public Use
  Company Number: US-BRISTOL-MYERS SQUIBB COMPANY-BMS-2020-074822

PATIENT
  Sex: Male

DRUGS (3)
  1. PEXMETINIB. [Suspect]
     Active Substance: PEXMETINIB
     Indication: PRODUCT USED FOR UNKNOWN INDICATION
     Dosage: UNK
     Route: 065
  2. CEFIXIME. [Concomitant]
     Active Substance: CEFIXIME
     Indication: ANTIBIOTIC THERAPY
     Dosage: 1 ABSENT
     Route: 042
     Dates: start: 20200905, end: 20200910
  3. NIVOLUMAB [Suspect]
     Active Substance: NIVOLUMAB
     Indication: PRODUCT USED FOR UNKNOWN INDICATION
     Dosage: UNK
     Route: 065

REACTIONS (6)
  - Gastrointestinal haemorrhage [Fatal]
  - Atrial fibrillation [Not Recovered/Not Resolved]
  - Shock haemorrhagic [Fatal]
  - Mesothelioma malignant [Fatal]
  - Rash maculo-papular [Not Recovered/Not Resolved]
  - Pulmonary congestion [Unknown]

NARRATIVE: CASE EVENT DATE: 20200906
